FAERS Safety Report 17055425 (Version 2)
Quarter: 2020Q1

REPORT INFORMATION
  Report Type: Spontaneous
  Country: JP (occurrence: JP)
  Receive Date: 20191120
  Receipt Date: 20200102
  Transmission Date: 20200409
  Serious: Yes (Life-Threatening)
  Sender: FDA-Public Use
  Company Number: JP-CELGENEUS-JPN-20191106704

PATIENT
  Age: 48 Year
  Sex: Female
  Weight: 42.4 kg

DRUGS (11)
  1. TRAMADOL HYDROCHLORIDE. [Concomitant]
     Active Substance: TRAMADOL HYDROCHLORIDE
     Dosage: 100 MILLIGRAM
     Route: 048
     Dates: start: 20190704, end: 20191110
  2. ELNEOPA NF NO.2 [Concomitant]
     Indication: NUTRITIONAL SUPPLEMENTATION
     Dosage: 1000 MILLILITER
     Route: 041
     Dates: start: 20190725, end: 20191110
  3. ABRAXANE [Suspect]
     Active Substance: PACLITAXEL
     Indication: GASTRIC CANCER
     Dosage: 100 MILLIGRAM/SQ. METER
     Route: 041
     Dates: start: 20190731, end: 20191106
  4. TRAMADOL HYDROCHLORIDE. [Concomitant]
     Active Substance: TRAMADOL HYDROCHLORIDE
     Indication: CANCER PAIN
     Dosage: 25 MILLIGRAM
     Route: 048
     Dates: start: 20190626, end: 20191110
  5. DECADRON [Concomitant]
     Active Substance: DEXAMETHASONE
     Indication: DECREASED APPETITE
  6. CYRAMZA [Suspect]
     Active Substance: RAMUCIRUMAB
     Indication: GASTRIC CANCER
     Dosage: 8 MILLIGRAM/KILOGRAM
     Route: 041
     Dates: start: 20190731, end: 20191106
  7. DECADRON [Concomitant]
     Active Substance: DEXAMETHASONE
     Indication: NAUSEA
     Dosage: 2 MILLIGRAM
     Route: 048
     Dates: start: 20190820, end: 20191110
  8. ACETAMINOPHEN. [Concomitant]
     Active Substance: ACETAMINOPHEN
     Indication: CANCER PAIN
     Dosage: 900 MILLIGRAM
     Route: 048
     Dates: start: 20190828, end: 20191110
  9. ESOMEPRAZOLE MAGNESIUM HYDRATE [Concomitant]
     Active Substance: ESOMEPRAZOLE MAGNESIUM
     Indication: GASTROINTESTINAL ULCER
     Dosage: 20 MILLIGRAM
     Route: 048
     Dates: start: 20190617, end: 20191110
  10. CELECOXIB. [Concomitant]
     Active Substance: CELECOXIB
     Indication: CANCER PAIN
     Dosage: 200 MILLIGRAM
     Route: 048
     Dates: start: 20190705, end: 20191110
  11. DECADRON [Concomitant]
     Active Substance: DEXAMETHASONE
     Indication: MALAISE

REACTIONS (3)
  - Large intestinal ulcer [Recovered/Resolved]
  - Gastrointestinal perforation [Recovered/Resolved]
  - Peritonitis [Recovered/Resolved]

NARRATIVE: CASE EVENT DATE: 20191110
